FAERS Safety Report 21403264 (Version 1)
Quarter: 2022Q4

REPORT INFORMATION
  Report Type: Spontaneous
  Country: US (occurrence: None)
  Receive Date: 20221001
  Receipt Date: 20221001
  Transmission Date: 20230113
  Serious: Yes (Hospitalization)
  Sender: FDA-Public Use
  Company Number: None

PATIENT
  Age: 71 Year
  Sex: Male
  Weight: 92.25 kg

DRUGS (8)
  1. SUPREP BOWEL PREP [Suspect]
     Active Substance: MAGNESIUM SULFATE\POTASSIUM SULFATE\SODIUM SULFATE
     Indication: Bowel preparation
     Dosage: OTHER QUANTITY : 2 BOTTLES (177 ML EA;?OTHER FREQUENCY : 4PM AND 9PM;?
     Route: 048
     Dates: start: 20220927, end: 20220927
  2. urolift staples [Concomitant]
  3. hernia mesh...lithium carbonate [Concomitant]
  4. TAMSULOSIN [Concomitant]
     Active Substance: TAMSULOSIN
  5. ALLOPURINOL [Concomitant]
  6. LEVOTHYROXINE [Concomitant]
     Active Substance: LEVOTHYROXINE
  7. ^one a day^ multi vitamin [Concomitant]
  8. MULTI-MINERAL (COMPOUND) [Concomitant]
     Active Substance: CHROMIC CHLORIDE\COPPER GLUCONATE\MAGNESIUM GLUCONATE\MANGANESE SULFATE\SODIUM SELENITE\ZINC CHLORID

REACTIONS (2)
  - Atrial fibrillation [None]
  - Procedure aborted [None]

NARRATIVE: CASE EVENT DATE: 20220928
